FAERS Safety Report 9624998 (Version 2)
Quarter: 2013Q4

REPORT INFORMATION
  Report Type: Report from Study
  Country: US (occurrence: US)
  Receive Date: 20131016
  Receipt Date: 20131106
  Transmission Date: 20140711
  Serious: Yes (Other)
  Sender: FDA-Public Use
  Company Number: US-ROCHE-1288343

PATIENT
  Age: 50 Year
  Sex: Female

DRUGS (4)
  1. AVASTIN [Suspect]
     Indication: NON-SMALL CELL LUNG CANCER
     Route: 042
     Dates: start: 20130601
  2. CARBOPLATIN [Concomitant]
     Route: 065
     Dates: start: 20130601, end: 20130601
  3. CISPLATIN [Concomitant]
     Route: 065
     Dates: start: 20130901
  4. ALIMTA [Concomitant]
     Route: 065
     Dates: start: 20131001

REACTIONS (12)
  - Anaphylactic reaction [Recovered/Resolved]
  - Dysphagia [Recovered/Resolved]
  - Dyspnoea [Recovered/Resolved]
  - Epistaxis [Not Recovered/Not Resolved]
  - Pharyngeal haemorrhage [Not Recovered/Not Resolved]
  - Mouth haemorrhage [Not Recovered/Not Resolved]
  - Gingival bleeding [Not Recovered/Not Resolved]
  - Bruxism [Not Recovered/Not Resolved]
  - Mental impairment [Not Recovered/Not Resolved]
  - Breath odour [Not Recovered/Not Resolved]
  - Productive cough [Not Recovered/Not Resolved]
  - Haemoptysis [Not Recovered/Not Resolved]
